FAERS Safety Report 7440591-X (Version None)
Quarter: 2011Q2

REPORT INFORMATION
  Report Type: 
  Country: None (occurrence: None)
  Receive Date: 20110427
  Receipt Date: 20110329
  Transmission Date: 20111010
  Serious: Yes (Other)
  Sender: FDA-Public Use
  Company Number: B0710761A

PATIENT
  Sex: Male
  Weight: 22.8 kg

DRUGS (12)
  1. GASMOTIN [Concomitant]
     Indication: NAUSEA
     Route: 048
     Dates: start: 20110317, end: 20110322
  2. ASVERIN [Concomitant]
     Route: 048
     Dates: start: 20110201
  3. RELENZA [Suspect]
     Indication: INFLUENZA
     Route: 055
     Dates: start: 20110202, end: 20110206
  4. COCARL [Concomitant]
     Indication: ANTIPYRESIS
     Route: 048
     Dates: start: 20110317, end: 20110326
  5. AMBROXOL HYDROCHLORIDE [Suspect]
     Dosage: .8G PER DAY
     Route: 048
     Dates: start: 20110317, end: 20110326
  6. MEPTIN [Suspect]
     Route: 048
     Dates: start: 20110317, end: 20110326
  7. RELENZA [Suspect]
     Dosage: 20MG PER DAY
     Route: 055
     Dates: start: 20110317, end: 20110319
  8. MEPTIN [Suspect]
     Indication: COUGH
     Route: 048
     Dates: start: 20110201
  9. ONON [Suspect]
     Indication: COUGH
     Route: 048
     Dates: start: 20110201
  10. MIYA BM [Concomitant]
     Indication: NAUSEA
     Dosage: .48G PER DAY
     Route: 048
     Dates: start: 20110317, end: 20110322
  11. AMBROXOL HYDROCHLORIDE [Suspect]
     Indication: COUGH
     Route: 048
     Dates: start: 20110201
  12. ONON [Suspect]
     Dosage: 1.6G PER DAY
     Route: 048
     Dates: start: 20110317, end: 20110326

REACTIONS (5)
  - SCREAMING [None]
  - RESTLESSNESS [None]
  - CRYING [None]
  - ALTERED STATE OF CONSCIOUSNESS [None]
  - AGGRESSION [None]
